FAERS Safety Report 8176175-8 (Version None)
Quarter: 2012Q1

REPORT INFORMATION
  Report Type: 
  Country: None (occurrence: None)
  Receive Date: 20120301
  Receipt Date: 20120223
  Transmission Date: 20120608
  Serious: Yes (Life-Threatening)
  Sender: FDA-Public Use
  Company Number: DE-JNJFOC-20120110923

PATIENT
  Age: 37 Year
  Sex: Female
  Weight: 56 kg

DRUGS (3)
  1. ETOMIDATE [Suspect]
     Indication: PRODUCT USED FOR UNKNOWN INDICATION
     Route: 065
     Dates: start: 20110531, end: 20110531
  2. ECULIZUMAB [Suspect]
     Indication: HAEMOLYTIC URAEMIC SYNDROME
     Route: 042
     Dates: start: 20110530, end: 20110530
  3. FENTANYL [Suspect]
     Indication: PRODUCT USED FOR UNKNOWN INDICATION
     Route: 062
     Dates: start: 20110531, end: 20110531

REACTIONS (4)
  - CONVULSION [None]
  - HYPOTENSION [None]
  - CARDIAC FAILURE [None]
  - BRADYCARDIA [None]
